FAERS Safety Report 5388620-1 (Version None)
Quarter: 2007Q3

REPORT INFORMATION
  Report Type: 
  Country: None (occurrence: None)
  Receive Date: 20070716
  Receipt Date: 20070704
  Transmission Date: 20080115
  Serious: Yes (Death, Life-Threatening)
  Sender: FDA-Public Use
  Company Number: SEWYE414730JAN07

PATIENT
  Age: 69 Year
  Sex: Male

DRUGS (11)
  1. TAZOCIN [Suspect]
     Indication: SEPSIS
     Dosage: ORDINARY DOSE
     Route: 042
     Dates: start: 20061112, end: 20061222
  2. FUROSEMIDE [Concomitant]
  3. DURAGESIC-100 [Concomitant]
  4. SUFENTANIL CITRATE [Concomitant]
     Dosage: SMALL DOSES AS NEEDED
  5. LAXATIVES [Concomitant]
  6. CIPROFLOXACIN [Concomitant]
     Dosage: NOT SPECIFIED
     Dates: start: 20061112
  7. METRONIDAZOLE [Concomitant]
     Dosage: NOT SPECIFIED
     Dates: start: 20061112
  8. FLUCONAZOLE [Concomitant]
     Dosage: NOT SPECIFIED
     Dates: start: 20061112
  9. HEPARIN [Concomitant]
  10. PHENYTOIN [Concomitant]
  11. MIDAZOLAM HCL [Concomitant]
     Dosage: SMALL DOSES AS NEEDED

REACTIONS (4)
  - MULTI-ORGAN FAILURE [None]
  - POST PROCEDURAL HAEMORRHAGE [None]
  - SEPTIC SHOCK [None]
  - SKIN HAEMORRHAGE [None]
